FAERS Safety Report 18665352 (Version 2)
Quarter: 2021Q1

REPORT INFORMATION
  Report Type: Spontaneous
  Country: US (occurrence: US)
  Receive Date: 20201225
  Receipt Date: 20210218
  Transmission Date: 20210419
  Serious: Yes (Hospitalization)
  Sender: FDA-Public Use
  Company Number: US-TEVA-2020-US-1861667

PATIENT
  Age: 91 Year
  Sex: Female

DRUGS (18)
  1. SMZ?TMP [Concomitant]
     Active Substance: SULFAMETHOXAZOLE\TRIMETHOPRIM
     Dosage: 400?80MG
  2. LINEZOLID. [Concomitant]
     Active Substance: LINEZOLID
     Route: 065
  3. POLY GLYC POW [Concomitant]
     Dosage: 3350 NF
     Route: 065
  4. PREDNISONE. [Concomitant]
     Active Substance: PREDNISONE
     Route: 065
  5. CEPHALEXIN. [Concomitant]
     Active Substance: CEPHALEXIN
     Route: 065
  6. CEFUROXIME. [Concomitant]
     Active Substance: CEFUROXIME
     Route: 065
  7. COPAXONE [Suspect]
     Active Substance: GLATIRAMER ACETATE
     Dosage: EVERY MONDAY, WEDNESDAY AND FRIDAY
     Route: 058
     Dates: start: 20200306
  8. CIPRO [Concomitant]
     Active Substance: CIPROFLOXACIN HYDROCHLORIDE
  9. PENTOXIFYLLI [Concomitant]
     Dosage: ER
     Route: 065
  10. DIAZEPAM. [Concomitant]
     Active Substance: DIAZEPAM
  11. MEGESLROL AC [Concomitant]
     Route: 065
  12. POT CITRATE [Concomitant]
     Active Substance: POTASSIUM CITRATE
     Route: 065
  13. PAROXETINE. [Concomitant]
     Active Substance: PAROXETINE
     Route: 065
  14. FLUCONAZOLE. [Concomitant]
     Active Substance: FLUCONAZOLE
     Route: 065
  15. ACETAMIN TAB [Concomitant]
     Route: 065
  16. COPAXONE [Suspect]
     Active Substance: GLATIRAMER ACETATE
     Indication: MULTIPLE SCLEROSIS
     Dosage: 17.1429 MILLIGRAM/MILLILITERS DAILY; EVERY MONDAY, WEDNESDAY AND FRIDAY
     Route: 058
     Dates: start: 20180119
  17. FEBUXOSTAT. [Concomitant]
     Active Substance: FEBUXOSTAT
     Route: 065
  18. DOXYCYC MONO CAP [Concomitant]

REACTIONS (4)
  - Fatigue [Not Recovered/Not Resolved]
  - Adverse event [Not Recovered/Not Resolved]
  - Urinary tract infection [Recovered/Resolved]
  - Decreased interest [Not Recovered/Not Resolved]

NARRATIVE: CASE EVENT DATE: 20201210
